FAERS Safety Report 7326478-1 (Version None)
Quarter: 2011Q1

REPORT INFORMATION
  Report Type: 
  Country: None (occurrence: None)
  Receive Date: 20110222
  Receipt Date: 20110209
  Transmission Date: 20110831
  Serious: Yes (Other)
  Sender: FDA-Public Use
  Company Number: US-001503

PATIENT
  Sex: Female

DRUGS (2)
  1. KUVAN [Suspect]
     Dates: start: 20090729
  2. NUTRIENTS WITHOUT PHENYLALANINE [Concomitant]

REACTIONS (3)
  - INFERTILITY FEMALE [None]
  - DRUG EXPOSURE DURING PREGNANCY [None]
  - ABORTION SPONTANEOUS [None]
